FAERS Safety Report 14599495 (Version 1)
Quarter: 2018Q1

REPORT INFORMATION
  Report Type: Spontaneous
  Country: DE (occurrence: DE)
  Receive Date: 20180305
  Receipt Date: 20180305
  Transmission Date: 20180509
  Serious: Yes (Hospitalization)
  Sender: FDA-Public Use
  Company Number: PHHY2018DE029758

PATIENT
  Age: 63 Year
  Sex: Male
  Weight: 98 kg

DRUGS (1)
  1. AMIODARONE [Suspect]
     Active Substance: AMIODARONE
     Indication: ATRIAL FIBRILLATION
     Dosage: 200 MG, QD
     Route: 065

REACTIONS (6)
  - Cyanosis [Unknown]
  - Dyspnoea [Unknown]
  - Photosensitivity reaction [Unknown]
  - Skin hyperpigmentation [Unknown]
  - Cardiac failure [Unknown]
  - Hypertensive crisis [Unknown]
